FAERS Safety Report 25038053 (Version 1)
Quarter: 2025Q1

REPORT INFORMATION
  Report Type: Spontaneous
  Country: US (occurrence: US)
  Receive Date: 20250304
  Receipt Date: 20250304
  Transmission Date: 20250409
  Serious: No
  Sender: BRACCO
  Company Number: US-BRACCO-2025US00224

PATIENT
  Age: 70 Year
  Sex: Male

DRUGS (1)
  1. POSLUMA [Suspect]
     Active Substance: FLOTUFOLASTAT F-18
     Indication: Positron emission tomogram
     Route: 042
     Dates: start: 20240821, end: 20240821

REACTIONS (1)
  - Positron emission tomogram abnormal [Unknown]

NARRATIVE: CASE EVENT DATE: 20240821
